FAERS Safety Report 7293330-X (Version None)
Quarter: 2011Q1

REPORT INFORMATION
  Report Type: 
  Country: None (occurrence: None)
  Receive Date: 20110210
  Receipt Date: 20110210
  Transmission Date: 20110831
  Serious: Yes (Life-Threatening)
  Sender: FDA-Public Use
  Company Number: None

PATIENT
  Age: 20 Year
  Sex: Female
  Weight: 122.4712 kg

DRUGS (1)
  1. DEPAKOTE [Suspect]
     Indication: BIPOLAR DISORDER
     Dosage: 500MG TWICE DAILY PO
     Route: 048
     Dates: start: 19960901, end: 19970901

REACTIONS (6)
  - PLATELET COUNT DECREASED [None]
  - BONE MARROW DISORDER [None]
  - WHITE BLOOD CELL COUNT DECREASED [None]
  - CONTUSION [None]
  - ANAEMIA [None]
  - ASTHENIA [None]
